FAERS Safety Report 15355354 (Version 1)
Quarter: 2018Q3

REPORT INFORMATION
  Report Type: Spontaneous
  Country: SG (occurrence: SG)
  Receive Date: 20180906
  Receipt Date: 20180906
  Transmission Date: 20181010
  Serious: Yes (Life-Threatening, Hospitalization, Other)
  Sender: FDA-Public Use
  Company Number: SG-ACCORD-071351

PATIENT
  Age: 75 Year
  Sex: Male

DRUGS (5)
  1. NOVOMIX [Suspect]
     Active Substance: INSULIN ASPART
     Dosage: 36U AFTER BREAKFAST AND 16U AFTER DINNER DAILY.
     Route: 058
  2. ATORVASTATIN [Concomitant]
     Active Substance: ATORVASTATIN
  3. ATENOLOL/ATENOLOL HYDROCHLORIDE [Concomitant]
  4. AMLODIPINE [Suspect]
     Active Substance: AMLODIPINE BESYLATE
     Dosage: TOTAL 140 MG
     Route: 048
  5. LINAGLIPTIN [Concomitant]
     Active Substance: LINAGLIPTIN

REACTIONS (7)
  - Hyperglycaemia [Recovered/Resolved]
  - Toxicity to various agents [Unknown]
  - Intentional overdose [Unknown]
  - Hypoglycaemia [Recovering/Resolving]
  - Hypotension [Recovered/Resolved]
  - Intentional product misuse [Unknown]
  - Suicide attempt [Unknown]
